FAERS Safety Report 8347526-6 (Version None)
Quarter: 2012Q2

REPORT INFORMATION
  Report Type: 
  Country: None (occurrence: None)
  Receive Date: 20120509
  Receipt Date: 20120426
  Transmission Date: 20120825
  Serious: Yes (Other)
  Sender: FDA-Public Use
  Company Number: TH-ROCHE-1066421

PATIENT
  Sex: Female
  Weight: 52.8 kg

DRUGS (4)
  1. ENALAPRIL MALEATE [Concomitant]
     Dates: start: 20110121
  2. PEGASYS [Suspect]
     Indication: HEPATITIS C
     Route: 058
     Dates: start: 20110302, end: 20110518
  3. HYDROCHLOROTHIAZIDE [Concomitant]
     Dates: start: 20110430
  4. ALISPORIVIR [Suspect]
     Indication: HEPATITIS C
     Dates: start: 20110309

REACTIONS (2)
  - CONCOMITANT DISEASE PROGRESSION [None]
  - RETINOPATHY [None]
